FAERS Safety Report 24787726 (Version 1)
Quarter: 2024Q4

REPORT INFORMATION
  Report Type: Spontaneous
  Country: US (occurrence: US)
  Receive Date: 20241230
  Receipt Date: 20241230
  Transmission Date: 20250114
  Serious: Yes (Hospitalization)
  Sender: STRIDES
  Company Number: US-STRIDES ARCOLAB LIMITED-2024SP017111

PATIENT
  Age: 13 Year
  Sex: Male

DRUGS (3)
  1. AZITHROMYCIN [Suspect]
     Active Substance: AZITHROMYCIN
     Indication: Babesiosis
     Dosage: UNK
     Route: 065
  2. DOXYCYCLINE [Suspect]
     Active Substance: DOXYCYCLINE
     Indication: Lyme disease
     Dosage: UNK
     Route: 065
  3. ATOVAQUONE [Suspect]
     Active Substance: ATOVAQUONE
     Indication: Babesiosis
     Dosage: UNK
     Route: 065

REACTIONS (4)
  - Intracranial pressure increased [Recovered/Resolved]
  - Papilloedema [Recovered/Resolved]
  - Therapy non-responder [Unknown]
  - Off label use [Unknown]
